FAERS Safety Report 20608833 (Version 1)
Quarter: 2022Q1

REPORT INFORMATION
  Report Type: Spontaneous
  Country: US (occurrence: US)
  Receive Date: 20220317
  Receipt Date: 20220317
  Transmission Date: 20220423
  Serious: Yes (Hospitalization)
  Sender: FDA-Public Use
  Company Number: US-MYLANLABS-2022M1020391

PATIENT
  Age: 40 Year
  Sex: Female

DRUGS (5)
  1. VANCOMYCIN [Suspect]
     Active Substance: VANCOMYCIN
     Indication: Staphylococcal bacteraemia
     Dosage: 1250 MILLIGRAM, Q8H
     Route: 065
  2. DALBAVANCIN [Suspect]
     Active Substance: DALBAVANCIN
     Indication: Staphylococcal bacteraemia
     Dosage: 1500 MILLIGRAM FIRST DOSE
     Route: 042
  3. DALBAVANCIN [Suspect]
     Active Substance: DALBAVANCIN
     Indication: Prophylaxis
  4. CEFTAROLINE [Concomitant]
     Active Substance: CEFTAROLINE
     Indication: Staphylococcal bacteraemia
     Route: 042
  5. DAPTOMYCIN [Concomitant]
     Active Substance: DAPTOMYCIN
     Indication: Staphylococcal bacteraemia
     Dosage: 650 MILLIGRAM, QD
     Route: 042

REACTIONS (1)
  - Drug ineffective [Unknown]
